FAERS Safety Report 8306988-0 (Version None)
Quarter: 2012Q2

REPORT INFORMATION
  Report Type: 
  Country: None (occurrence: None)
  Receive Date: 20120424
  Receipt Date: 20120411
  Transmission Date: 20120825
  Serious: Yes (Other)
  Sender: FDA-Public Use
  Company Number: PHHY2012EC034111

PATIENT
  Sex: Male

DRUGS (2)
  1. TEGRETOL-XR [Suspect]
     Indication: CONVULSION
     Dosage: 1 DF, DAILY
     Route: 048
     Dates: start: 20100101
  2. DIOVAN HCT [Concomitant]
     Dosage: 1 DF, DAILY
     Route: 048

REACTIONS (4)
  - FALL [None]
  - PAIN IN EXTREMITY [None]
  - INJURY [None]
  - CONVULSION [None]
